FAERS Safety Report 7796639-6 (Version None)
Quarter: 2011Q4

REPORT INFORMATION
  Report Type: 
  Country: None (occurrence: None)
  Receive Date: 20111005
  Receipt Date: 20110923
  Transmission Date: 20120403
  Serious: Yes (Hospitalization)
  Sender: FDA-Public Use
  Company Number: US-BAYER-2011-015077

PATIENT
  Age: 18 Year
  Sex: Female
  Weight: 82 kg

DRUGS (23)
  1. YASMIN [Suspect]
     Indication: CONTRACEPTION
     Dosage: UNK
     Dates: start: 20050801, end: 20070901
  2. ZITHROMAX [Concomitant]
  3. BACTROBAN [Concomitant]
     Route: 061
  4. AZITHROMYCIN [Concomitant]
  5. PROAIR HFA [Concomitant]
  6. ACETAMINOPHEN AND OXYCODONE HCL [Concomitant]
     Dosage: UNK
     Dates: start: 20060927
  7. YASMIN [Suspect]
     Indication: PREMENSTRUAL SYNDROME
  8. NABUMETONE [Concomitant]
  9. ZOLOFT [Concomitant]
     Indication: DEPRESSION
     Dosage: UNK UNK, BID
     Dates: start: 20030101, end: 20070101
  10. IBUPROFEN [Concomitant]
  11. DARVON-N [Concomitant]
  12. PENICILLIN [Concomitant]
  13. METRONIDAZOLE [Concomitant]
  14. ZOFRAN [Concomitant]
     Dosage: 4 MG, UNK
     Dates: start: 20060927
  15. TRILEPTAL [Concomitant]
     Indication: BIPOLAR DISORDER
     Dosage: UNK UNK, CONT
     Dates: start: 20050101, end: 20070101
  16. DICYCLOMINE [Concomitant]
  17. SULFAMETHOXAZOLE AND TRIMETHOPRIM [Concomitant]
  18. AMOXICILLIN [Concomitant]
  19. PROMETHAZINE [Concomitant]
  20. OMNICEF [Concomitant]
  21. ALBUTEROL [Concomitant]
  22. RISPERDAL [Concomitant]
     Indication: BIPOLAR DISORDER
     Dosage: UNK UNK, BID
     Dates: start: 20040101, end: 20070101
  23. CLONIDINE [Concomitant]
     Indication: ATTENTION DEFICIT/HYPERACTIVITY DISORDER
     Dosage: UNK UNK, BID
     Dates: start: 20040101, end: 20070101

REACTIONS (5)
  - CHOLECYSTITIS CHRONIC [None]
  - ANXIETY [None]
  - EMOTIONAL DISTRESS [None]
  - GALLBLADDER INJURY [None]
  - PAIN [None]
